FAERS Safety Report 23870330 (Version 3)
Quarter: 2024Q3

REPORT INFORMATION
  Report Type: Other
  Country: US (occurrence: US)
  Receive Date: 20240517
  Receipt Date: 20240930
  Transmission Date: 20241016
  Serious: No
  Sender: TRAVERE THERAPEUTICS
  Company Number: US-TRAVERE-2024TVT00454

PATIENT
  Age: 57 Year
  Sex: Male

DRUGS (1)
  1. FILSPARI [Suspect]
     Active Substance: SPARSENTAN
     Indication: Chronic kidney disease
     Route: 048
     Dates: start: 202312

REACTIONS (7)
  - Pain in extremity [None]
  - Product use in unapproved indication [Unknown]
  - Malaise [Unknown]
  - Muscle spasms [Unknown]
  - Myalgia [Unknown]
  - Swelling face [Unknown]
  - Ocular hyperaemia [Unknown]
